FAERS Safety Report 8227785-0 (Version None)
Quarter: 2012Q1

REPORT INFORMATION
  Report Type: 
  Country: None (occurrence: None)
  Receive Date: 20120322
  Receipt Date: 20120319
  Transmission Date: 20120608
  Serious: Yes (Hospitalization)
  Sender: FDA-Public Use
  Company Number: CL-ROCHE-1050666

PATIENT
  Sex: Male
  Weight: 57 kg

DRUGS (2)
  1. XELODA [Suspect]
     Indication: COLON CANCER
     Route: 048
     Dates: start: 20111223, end: 20120309
  2. OXALIPLATIN [Suspect]
     Indication: COLON CANCER
     Route: 042
     Dates: start: 20111223, end: 20120309

REACTIONS (2)
  - WEIGHT DECREASED [None]
  - PNEUMONITIS [None]
